FAERS Safety Report 22260466 (Version 1)
Quarter: 2023Q2

REPORT INFORMATION
  Report Type: Spontaneous
  Country: US (occurrence: US)
  Receive Date: 20230427
  Receipt Date: 20230427
  Transmission Date: 20230721
  Serious: Yes (Other)
  Sender: FDA-Public Use
  Company Number: US-BRISTOL-MYERS SQUIBB COMPANY-2023-056175

PATIENT
  Age: 70 Year
  Sex: Female

DRUGS (2)
  1. LENALIDOMIDE [Suspect]
     Active Substance: LENALIDOMIDE
     Indication: Product used for unknown indication
     Dosage: DAILY FOR 10 DAYS
     Route: 048
     Dates: start: 20230111
  2. LENALIDOMIDE [Suspect]
     Active Substance: LENALIDOMIDE
     Dates: start: 2023

REACTIONS (2)
  - Neutropenia [Recovered/Resolved]
  - White blood cell disorder [Recovered/Resolved]

NARRATIVE: CASE EVENT DATE: 20230101
